FAERS Safety Report 7823901-0 (Version None)
Quarter: 2011Q4

REPORT INFORMATION
  Report Type: 
  Country: None (occurrence: None)
  Receive Date: 20111018
  Receipt Date: 20111018
  Transmission Date: 20120403
  Serious: Yes (Hospitalization)
  Sender: FDA-Public Use
  Company Number: None

PATIENT
  Sex: Male
  Weight: 83.4 kg

DRUGS (3)
  1. RIBASPHERE [Suspect]
     Indication: HEPATITIS C
     Dosage: 500AM 400PM BID ORAL
     Route: 048
     Dates: start: 20110824, end: 20111004
  2. INCIVEK [Concomitant]
  3. PEGASYS [Suspect]
     Indication: HEPATITIS C
     Dosage: 190MCG QW SQ
     Route: 058
     Dates: start: 20110824, end: 20110930

REACTIONS (1)
  - ANAEMIA [None]
